FAERS Safety Report 5642954-1 (Version None)
Quarter: 2008Q1

REPORT INFORMATION
  Report Type: 
  Country: None (occurrence: None)
  Receive Date: 20080227
  Receipt Date: 20080227
  Transmission Date: 20080703
  Serious: Yes (Other)
  Sender: FDA-Public Use
  Company Number: None

PATIENT
  Age: 47 Year
  Sex: Female
  Weight: 56.6996 kg

DRUGS (1)
  1. LUPRON DEPOT [Suspect]
     Indication: ENDOMETRIOSIS
     Dosage: 3.75MG IM
     Route: 030
     Dates: start: 20071212, end: 20071212

REACTIONS (11)
  - AGITATION [None]
  - AMNESIA [None]
  - DELUSION [None]
  - DEPRESSION [None]
  - DIZZINESS [None]
  - DYSURIA [None]
  - MUSCULAR WEAKNESS [None]
  - PELVIC PAIN [None]
  - SUICIDAL IDEATION [None]
  - TINNITUS [None]
  - VAGINAL HAEMORRHAGE [None]
